FAERS Safety Report 20262614 (Version 1)
Quarter: 2021Q4

REPORT INFORMATION
  Report Type: Spontaneous
  Country: US (occurrence: US)
  Receive Date: 20211231
  Receipt Date: 20211231
  Transmission Date: 20220303
  Serious: No
  Sender: FDA-Public Use
  Company Number: US-drreddys-SPO/USA/21/0145193

PATIENT
  Age: 25 Year
  Sex: Female

DRUGS (1)
  1. ZENATANE [Suspect]
     Active Substance: ISOTRETINOIN
     Indication: Product used for unknown indication
     Dosage: RMA ISSUE DATE: 11/23/2021 07:34:16 PM, 10/21/2021 04:46:50 PM, 09/17/2021 11:10:08 AM

REACTIONS (1)
  - Treatment noncompliance [Unknown]
